FAERS Safety Report 17508833 (Version 1)
Quarter: 2020Q1

REPORT INFORMATION
  Report Type: Spontaneous
  Country: US (occurrence: US)
  Receive Date: 20200305
  Receipt Date: 20200305
  Transmission Date: 20200409
  Serious: No
  Sender: FDA-Public Use
  Company Number: None

PATIENT
  Sex: Male

DRUGS (3)
  1. CETIRIZINE [Concomitant]
     Active Substance: CETIRIZINE HYDROCHLORIDE
  2. MONTELUKAST SODIUM CHEWABLE TABLETS USP 5MG [Suspect]
     Active Substance: MONTELUKAST SODIUM
     Indication: HYPERSENSITIVITY
     Dosage: ?          QUANTITY:30 TABLET(S);?
     Route: 048
     Dates: start: 20140805
  3. MONTELUKAST SODIUM CHEWABLE TABLETS USP 5MG [Suspect]
     Active Substance: MONTELUKAST SODIUM
     Indication: ASTHMA
     Dosage: ?          QUANTITY:30 TABLET(S);?
     Route: 048
     Dates: start: 20140805

REACTIONS (8)
  - Nightmare [None]
  - Dysphemia [None]
  - Sleep talking [None]
  - Insomnia [None]
  - Suicidal ideation [None]
  - Crying [None]
  - Somnambulism [None]
  - Cognitive disorder [None]
